FAERS Safety Report 8827345 (Version 1)
Quarter: 2012Q4

REPORT INFORMATION
  Report Type: 
  Country: US (occurrence: US)
  Receive Date: 20121005
  Receipt Date: 20121005
  Transmission Date: 20130627
  Serious: No
  Sender: FDA-Public Use
  Company Number: US-BRISTOL-MYERS SQUIBB COMPANY-16071177

PATIENT
  Age: 68 Year
  Sex: Female
  Weight: 82 kg

DRUGS (3)
  1. AVAPRO [Suspect]
  2. HYDROCHLOROTHIAZIDE [Suspect]
     Dosage: decreased to 12.5mg
  3. BENICAR [Suspect]

REACTIONS (2)
  - Headache [Unknown]
  - Blood pressure increased [Unknown]
